FAERS Safety Report 9240836 (Version 1)
Quarter: 2013Q1

REPORT INFORMATION
  Report Type: Spontaneous
  Country: US (occurrence: None)
  Receive Date: 20121120
  Receipt Date: 20121120
  Transmission Date: 20140127
  Serious: No
  Sender: FDA-Public Use
  Company Number: 1000037475

PATIENT
  Age: 64 Year
  Sex: Female

DRUGS (4)
  1. VIIBRYD [Suspect]
     Indication: DEPRESSION
     Route: 048
     Dates: start: 201206, end: 2012
  2. CELEXA (CITALOPRAM HYDROBROMIDE) (CITALOPRAM HYDROBROMIDE) [Concomitant]
  3. SALAGEN (PILOCARPINE HYDROCHLORIDE) (PILOCARPINE HYDROCHLORIDE) [Concomitant]
  4. VESICARE(SOLIFENACIN SUCCINATE)(SOLIFENACIN SUCCINATE) [Concomitant]

REACTIONS (4)
  - Crying [None]
  - Irritability [None]
  - Dizziness [None]
  - Drug ineffective [None]
